FAERS Safety Report 20746970 (Version 2)
Quarter: 2022Q2

REPORT INFORMATION
  Report Type: Spontaneous
  Country: US (occurrence: US)
  Receive Date: 20220425
  Receipt Date: 20220615
  Transmission Date: 20220721
  Serious: No
  Sender: FDA-Public Use
  Company Number: US-GILEAD-2022-0579145

PATIENT
  Age: 31 Year
  Sex: Male

DRUGS (1)
  1. TRUVADA [Suspect]
     Active Substance: EMTRICITABINE\TENOFOVIR DISOPROXIL FUMARATE
     Indication: HIV infection
     Dosage: UNK
     Route: 048
     Dates: start: 20150928, end: 2019

REACTIONS (3)
  - Tooth loss [Unknown]
  - Bone density decreased [Unknown]
  - Lower limb fracture [Not Recovered/Not Resolved]

NARRATIVE: CASE EVENT DATE: 20190201
